FAERS Safety Report 14046630 (Version 4)
Quarter: 2018Q2

REPORT INFORMATION
  Report Type: Report from Study
  Country: CH (occurrence: CH)
  Receive Date: 20171005
  Receipt Date: 20180621
  Transmission Date: 20180711
  Serious: Yes (Death, Hospitalization)
  Sender: FDA-Public Use
  Company Number: CH-INCYTE CORPORATION-2017IN008404

PATIENT

DRUGS (1)
  1. JAKAVI [Suspect]
     Active Substance: RUXOLITINIB
     Indication: PRIMARY MYELOFIBROSIS
     Dosage: 15 MG, BID
     Route: 048
     Dates: start: 20120808

REACTIONS (6)
  - Second primary malignancy [Fatal]
  - Oral candidiasis [Recovered/Resolved]
  - Dyspnoea [Unknown]
  - Pleural effusion [Unknown]
  - Intertrigo [Recovered/Resolved]
  - Bronchial carcinoma [Fatal]

NARRATIVE: CASE EVENT DATE: 20161110
